FAERS Safety Report 8378455-X (Version None)
Quarter: 2012Q2

REPORT INFORMATION
  Report Type: 
  Country: None (occurrence: None)
  Receive Date: 20120522
  Receipt Date: 20120314
  Transmission Date: 20120825
  Serious: No
  Sender: FDA-Public Use
  Company Number: US-ASTRAZENECA-2012SE18159

PATIENT
  Age: 38 Year
  Sex: Female

DRUGS (5)
  1. ALOE 2 OZ [Concomitant]
  2. PRILOSEC [Suspect]
     Route: 048
  3. PAPAYA ENZYME [Concomitant]
  4. BENADRYL [Concomitant]
  5. PREVACID [Concomitant]

REACTIONS (10)
  - HYPERTENSION [None]
  - HERNIA [None]
  - ACUTE SINUSITIS [None]
  - COUGH [None]
  - DRUG INEFFECTIVE [None]
  - GASTROOESOPHAGEAL REFLUX DISEASE [None]
  - EAR PAIN [None]
  - FAT INTOLERANCE [None]
  - ABDOMINAL PAIN UPPER [None]
  - NAUSEA [None]
